FAERS Safety Report 7125800-9 (Version None)
Quarter: 2010Q4

REPORT INFORMATION
  Report Type: 
  Country: None (occurrence: None)
  Receive Date: 20101129
  Receipt Date: 20101118
  Transmission Date: 20110411
  Serious: Yes (Other)
  Sender: FDA-Public Use
  Company Number: B0686240A

PATIENT
  Sex: Male

DRUGS (1)
  1. AVAMYS [Suspect]
     Route: 045
     Dates: start: 20090112, end: 20090412

REACTIONS (1)
  - CHORIORETINOPATHY [None]
